FAERS Safety Report 4527330-7 (Version None)
Quarter: 2004Q4

REPORT INFORMATION
  Report Type: 
  Country: None (occurrence: None)
  Receive Date: 20041214
  Receipt Date: 20041214
  Transmission Date: 20050328
  Serious: No
  Sender: FDA-Public Use
  Company Number: None

PATIENT
  Sex: Female
  Weight: 72.5755 kg

DRUGS (2)
  1. CELEXA [Suspect]
     Indication: BIPOLAR I DISORDER
     Dosage: 30  MG 1 X A DAY ORAL
     Route: 048
     Dates: start: 20041111, end: 20041213
  2. RISPERDAL [Suspect]
     Dosage: 1.5 MG  2X A DAY ORAL
     Route: 048
     Dates: start: 20041111, end: 20041213

REACTIONS (5)
  - ABNORMAL BEHAVIOUR [None]
  - AGGRESSION [None]
  - CRYING [None]
  - PSYCHOTIC DISORDER [None]
  - SELF INJURIOUS BEHAVIOUR [None]
